FAERS Safety Report 7016288-7 (Version None)
Quarter: 2010Q3

REPORT INFORMATION
  Report Type: 
  Country: None (occurrence: None)
  Receive Date: 20100909
  Receipt Date: 20100507
  Transmission Date: 20110219
  Serious: No
  Sender: FDA-Public Use
  Company Number: 2010SP026095

PATIENT
  Age: 34 Year
  Sex: Female

DRUGS (6)
  1. SAPHRIS [Suspect]
     Indication: BIPOLAR DISORDER
     Dosage: 10 MG;BID
     Route: 060
     Dates: start: 20100325, end: 20100325
  2. SAPHRIS [Suspect]
     Indication: DEPRESSION
     Dosage: 10 MG;BID
     Route: 060
     Dates: start: 20100325, end: 20100325
  3. VISTARIL (CON.) [Concomitant]
  4. AMBIEN (CON.) [Concomitant]
  5. CYMBALTA (CON.) [Concomitant]
  6. PHENERGAN (CON.) [Concomitant]

REACTIONS (4)
  - DYSGEUSIA [None]
  - HYPOAESTHESIA [None]
  - NAUSEA [None]
  - VOMITING [None]
